FAERS Safety Report 4850462-0 (Version None)
Quarter: 2005Q4

REPORT INFORMATION
  Report Type: 
  Country: None (occurrence: None)
  Receive Date: 20051207
  Receipt Date: 20051207
  Transmission Date: 20060501
  Serious: Yes (Other)
  Sender: FDA-Public Use
  Company Number: None

PATIENT
  Age: 82 Year
  Sex: Male
  Weight: 72.5755 kg

DRUGS (1)
  1. HYDROCODONE 5MG/ACETAMINOPHEN 500MG [Suspect]
     Indication: BACK PAIN
     Dosage: ONE TAB Q 6 HRS PRN
     Dates: start: 20050317, end: 20050408

REACTIONS (1)
  - RASH [None]
